FAERS Safety Report 10082766 (Version 1)
Quarter: 2014Q2

REPORT INFORMATION
  Report Type: Spontaneous
  Country: US (occurrence: US)
  Receive Date: 20140416
  Receipt Date: 20140416
  Transmission Date: 20141212
  Serious: No
  Sender: FDA-Public Use
  Company Number: US-ALLERGAN-1307897US

PATIENT
  Age: 61 Year
  Sex: Female

DRUGS (7)
  1. ZYMAXID [Suspect]
     Indication: PREOPERATIVE CARE
     Dosage: 1 GTT, QID
     Route: 047
     Dates: start: 20130525, end: 20130526
  2. ZYMAXID [Suspect]
  3. VITAMIN C                          /00008001/ [Concomitant]
     Indication: SUPPLEMENTATION THERAPY
     Dosage: UNK
  4. VITAMIN D                          /00107901/ [Concomitant]
     Indication: SUPPLEMENTATION THERAPY
     Dosage: UNK
  5. FRUIT/VEGETABLE ENZYME [Concomitant]
     Indication: SUPPLEMENTATION THERAPY
     Dosage: UNK
  6. CALCIUM CITRATE [Concomitant]
     Indication: SUPPLEMENTATION THERAPY
     Dosage: UNK
  7. GLUCOSAMINE [Concomitant]
     Indication: ARTHRITIS
     Dosage: UNK

REACTIONS (1)
  - Eye irritation [Recovered/Resolved]
